FAERS Safety Report 16752790 (Version 1)
Quarter: 2019Q3

REPORT INFORMATION
  Report Type: Spontaneous
  Country: IT (occurrence: IT)
  Receive Date: 20190829
  Receipt Date: 20190829
  Transmission Date: 20191005
  Serious: Yes (Other)
  Sender: FDA-Public Use
  Company Number: IT-CELLTRION INC.-2019IT024053

PATIENT

DRUGS (3)
  1. MYCOPHENOLATE MOFETIL. [Suspect]
     Active Substance: MYCOPHENOLATE MOFETIL
     Indication: NEPHROTIC SYNDROME
     Route: 048
  2. RITUXIMAB (UNKNOWN) [Suspect]
     Active Substance: RITUXIMAB
     Indication: NEPHROTIC SYNDROME
     Dosage: 375 MG/M2, AT THE FIRST INFUSION
     Route: 041
  3. PREDNISONE. [Suspect]
     Active Substance: PREDNISONE
     Indication: NEPHROTIC SYNDROME
     Route: 048

REACTIONS (8)
  - Pneumonia [Unknown]
  - Lymphadenopathy [Unknown]
  - Human herpesvirus 6 infection [Unknown]
  - Blood immunoglobulin M increased [Unknown]
  - Product use in unapproved indication [Unknown]
  - Blood immunoglobulin A decreased [Not Recovered/Not Resolved]
  - Epstein-Barr virus infection [Unknown]
  - Hypogammaglobulinaemia [Unknown]
